FAERS Safety Report 4869970-1 (Version None)
Quarter: 2005Q4

REPORT INFORMATION
  Report Type: 
  Country: None (occurrence: None)
  Receive Date: 20051223
  Receipt Date: 20020318
  Transmission Date: 20060501
  Serious: Yes (Death, Hospitalization)
  Sender: FDA-Public Use
  Company Number: HQ9656427DEC2001

PATIENT
  Age: 71 Year
  Sex: Female

DRUGS (3)
  1. MYLOTARG [Suspect]
     Indication: ACUTE MYELOID LEUKAEMIA
     Dosage: SEE IMAGE
     Route: 042
     Dates: start: 20011206, end: 20011206
  2. MYLOTARG [Suspect]
     Indication: ACUTE MYELOID LEUKAEMIA
     Dosage: SEE IMAGE
     Route: 042
     Dates: start: 20011213, end: 20011213
  3. CYTARABINE [Suspect]
     Indication: ACUTE MYELOID LEUKAEMIA
     Dosage: 100 MG/M(2) TOTAL DAILY DOSE, INTRAVENOUS
     Route: 042
     Dates: start: 20011207, end: 20011214

REACTIONS (14)
  - CEREBRAL HAEMORRHAGE [None]
  - COAGULOPATHY [None]
  - CONFUSIONAL STATE [None]
  - DIALYSIS [None]
  - DISSEMINATED INTRAVASCULAR COAGULATION [None]
  - HAEMOPTYSIS [None]
  - HEPATIC ENZYME INCREASED [None]
  - MELAENA [None]
  - MULTI-ORGAN FAILURE [None]
  - PANCREATITIS [None]
  - PULMONARY HAEMORRHAGE [None]
  - RENAL FAILURE [None]
  - THROMBOCYTOPENIA [None]
  - THROMBOSIS [None]
